FAERS Safety Report 10067499 (Version 2)
Quarter: 2014Q2

REPORT INFORMATION
  Report Type: Report from Study
  Country: US (occurrence: US)
  Receive Date: 20140409
  Receipt Date: 20140414
  Transmission Date: 20141212
  Serious: Yes (Other)
  Sender: FDA-Public Use
  Company Number: US-JNJFOC-20140403315

PATIENT
  Age: 14 Year
  Sex: Male
  Weight: 40.4 kg

DRUGS (8)
  1. REMICADE [Suspect]
     Indication: CROHN^S DISEASE
     Route: 042
     Dates: start: 20131122
  2. REMICADE [Suspect]
     Indication: CROHN^S DISEASE
     Route: 042
     Dates: start: 20131010
  3. REMICADE [Suspect]
     Indication: CROHN^S DISEASE
     Route: 042
     Dates: start: 20111128
  4. INFLUENZA VACCINE [Concomitant]
     Route: 065
  5. FERROUS SULPHATE [Concomitant]
     Route: 065
  6. MIRALAX [Concomitant]
     Route: 065
  7. PROBIOTICS [Concomitant]
     Route: 065
  8. MULTIPLE VITAMINS WITH IRON [Concomitant]
     Route: 065

REACTIONS (1)
  - Psoriasis [Recovered/Resolved with Sequelae]
